FAERS Safety Report 7232757-9 (Version None)
Quarter: 2011Q1

REPORT INFORMATION
  Report Type: 
  Country: None (occurrence: None)
  Receive Date: 20110107
  Receipt Date: 20101220
  Transmission Date: 20110831
  Serious: Yes (Hospitalization)
  Sender: FDA-Public Use
  Company Number: 2011000065

PATIENT
  Age: 62 Year
  Sex: Female

DRUGS (3)
  1. BEVACIZUMAB (INJECTION FOR INFUSION) [Suspect]
  2. ERLOTINIB HYDROCHLORIDE [Suspect]
     Indication: NON-SMALL CELL LUNG CANCER
     Dosage: 150 MG, QD, ORAL
     Route: 048
     Dates: start: 20060110, end: 20060126
  3. BEVACIZUMAB (INJECTION FOR INFUSION) [Suspect]
     Indication: NON-SMALL CELL LUNG CANCER
     Dosage: 840 MG, Q3W, INTRAVENOUS
     Route: 042
     Dates: start: 20060110, end: 20060126

REACTIONS (4)
  - DISEASE PROGRESSION [None]
  - ARTHRALGIA [None]
  - PNEUMONIA [None]
  - NON-SMALL CELL LUNG CANCER [None]
